FAERS Safety Report 7273233-7 (Version None)
Quarter: 2011Q1

REPORT INFORMATION
  Report Type: 
  Country: None (occurrence: None)
  Receive Date: 20110203
  Receipt Date: 20110124
  Transmission Date: 20110831
  Serious: Yes (Hospitalization, Other)
  Sender: FDA-Public Use
  Company Number: US-ELI_LILLY_AND_COMPANY-US201012004817

PATIENT
  Age: 45 Year
  Sex: Female

DRUGS (3)
  1. FLUOXETINE HYDROCHLORIDE [Suspect]
     Indication: DEPRESSION
     Dosage: 20 MG, DAILY (1/D)
  2. CYMBALTA [Suspect]
     Indication: MAJOR DEPRESSION
     Dosage: 120 MG, UNK
     Dates: end: 20100201
  3. CYMBALTA [Suspect]
     Dosage: UNK, UNKNOWN
     Dates: start: 20100401

REACTIONS (1)
  - DRUG WITHDRAWAL CONVULSIONS [None]
